FAERS Safety Report 13035465 (Version 2)
Quarter: 2017Q2

REPORT INFORMATION
  Report Type: Spontaneous
  Country: AU (occurrence: AU)
  Receive Date: 20161216
  Receipt Date: 20170425
  Transmission Date: 20170830
  Serious: Yes (Other)
  Sender: FDA-Public Use
  Company Number: AU-AMGEN-AUSSP2016176139

PATIENT
  Age: 86 Year
  Sex: Female

DRUGS (2)
  1. PROLIA [Suspect]
     Active Substance: DENOSUMAB
     Indication: HYPERCALCAEMIA
  2. PROLIA [Suspect]
     Active Substance: DENOSUMAB
     Indication: HYPERPARATHYROIDISM PRIMARY
     Dosage: UNK
     Route: 065
     Dates: start: 201606

REACTIONS (2)
  - Off label use [Unknown]
  - Nephrolithiasis [Unknown]

NARRATIVE: CASE EVENT DATE: 201611
